FAERS Safety Report 9935880 (Version 1)
Quarter: 2014Q1

REPORT INFORMATION
  Report Type: Spontaneous
  Country: US (occurrence: US)
  Receive Date: 20140228
  Receipt Date: 20140228
  Transmission Date: 20141002
  Serious: No
  Sender: FDA-Public Use
  Company Number: US-AMGEN-USASP2013072696

PATIENT
  Age: 64 Year
  Sex: Female
  Weight: 85.26 kg

DRUGS (13)
  1. ENBREL [Suspect]
     Indication: PRODUCT USED FOR UNKNOWN INDICATION
     Dosage: 50 MG/ML, QWK
     Route: 065
  2. COMBIGAN [Concomitant]
     Dosage: SOLUTION 0.2/0.5%
  3. METHOTREXATE [Concomitant]
     Dosage: 2.5 MG, UNK
  4. AZOPT [Concomitant]
     Dosage: UNK
     Route: 047
  5. LIPITOR [Concomitant]
     Dosage: 10 MG, UNK
  6. METFORMIN [Concomitant]
     Dosage: 850 MG, UNK
  7. GLYBURIDE [Concomitant]
     Dosage: 1.25 MG, UNK
  8. ZANTAC [Concomitant]
     Dosage: 75 UNK, UNK
  9. LOSARTAN POTASSIUM [Concomitant]
     Dosage: 25 MG, UNK
  10. FISH OIL [Concomitant]
     Dosage: UNK
  11. VITAMIN C                          /00008001/ [Concomitant]
     Dosage: 500 MG, UNK
  12. CALCIUM + VIT D [Concomitant]
     Dosage: UNK
  13. FOLIC ACID [Concomitant]
     Dosage: UNK

REACTIONS (5)
  - Arthralgia [Unknown]
  - Diarrhoea [Unknown]
  - Dizziness [Unknown]
  - Fatigue [Unknown]
  - Injection site pain [Unknown]
